FAERS Safety Report 9677099 (Version 3)
Quarter: 2014Q2

REPORT INFORMATION
  Report Type: Report from Study
  Country: CA (occurrence: CA)
  Receive Date: 20131108
  Receipt Date: 20140523
  Transmission Date: 20141212
  Serious: Yes (Other)
  Sender: FDA-Public Use
  Company Number: CA-ROCHE-1220505

PATIENT
  Age: 48 Year
  Sex: Female
  Weight: 95.34 kg

DRUGS (12)
  1. RITUXAN [Suspect]
     Indication: ANTISYNTHETASE SYNDROME
     Route: 042
     Dates: start: 20130429
  2. RITUXAN [Suspect]
     Indication: POLYMYOSITIS
     Dosage: ON 23/DEC/2013, SHE ADMINISTERED THE MOST RECENT DOSE OF RITUXIMAB
     Route: 042
     Dates: start: 20130513
  3. CELLCEPT [Suspect]
     Indication: PRODUCT USED FOR UNKNOWN INDICATION
     Dosage: 1 PILL
     Route: 065
  4. IMURAN [Suspect]
     Indication: PRODUCT USED FOR UNKNOWN INDICATION
     Route: 065
     Dates: start: 20130903, end: 2013
  5. PREDNISONE [Suspect]
     Indication: PRODUCT USED FOR UNKNOWN INDICATION
     Route: 065
  6. PREDNISONE [Suspect]
     Route: 065
     Dates: start: 20131031
  7. ACTONEL [Concomitant]
  8. SEPTRA [Concomitant]
  9. LOSEC [Concomitant]
  10. DIPHENHYDRAMINE HCL [Concomitant]
     Route: 048
     Dates: start: 20130429
  11. ACETAMINOPHEN [Concomitant]
     Route: 048
     Dates: start: 20130429
  12. METHYLPREDNISOLONE [Concomitant]
     Route: 042
     Dates: start: 20130429

REACTIONS (11)
  - Depression [Recovering/Resolving]
  - Anxiety [Recovering/Resolving]
  - Apathy [Recovering/Resolving]
  - Paraesthesia oral [Recovered/Resolved]
  - Paraesthesia [Recovered/Resolved]
  - Drug intolerance [Unknown]
  - Weight increased [Not Recovered/Not Resolved]
  - Therapeutic response decreased [Unknown]
  - Weight increased [Unknown]
  - Stress [Unknown]
  - Off label use [Unknown]
